FAERS Safety Report 7323515-5 (Version None)
Quarter: 2011Q1

REPORT INFORMATION
  Report Type: 
  Country: None (occurrence: None)
  Receive Date: 20110301
  Receipt Date: 20110218
  Transmission Date: 20110831
  Serious: Yes (Other)
  Sender: FDA-Public Use
  Company Number: PHHY2010JP76471

PATIENT
  Age: 75 Year
  Sex: Male

DRUGS (4)
  1. AFINITOR [Suspect]
     Indication: METASTATIC RENAL CELL CARCINOMA
     Dosage: 10 MG, DAILY
     Route: 048
     Dates: start: 20101026, end: 20101108
  2. BLOPRESS [Concomitant]
     Dosage: 8 MG, UNK
     Route: 048
  3. INTERFERON ALFA [Concomitant]
     Indication: METASTATIC RENAL CELL CARCINOMA
     Dosage: 6000000IU
     Dates: start: 20081126, end: 20090510
  4. CRESTOR [Concomitant]
     Dosage: 5 MG, UNK
     Route: 048

REACTIONS (3)
  - RASH GENERALISED [None]
  - SKIN EXFOLIATION [None]
  - RENAL IMPAIRMENT [None]
